FAERS Safety Report 18542377 (Version 3)
Quarter: 2021Q1

REPORT INFORMATION
  Report Type: Spontaneous
  Country: US (occurrence: US)
  Receive Date: 20201124
  Receipt Date: 20210315
  Transmission Date: 20210419
  Serious: No
  Sender: FDA-Public Use
  Company Number: US-INCYTE CORPORATION-2020IN011456

PATIENT

DRUGS (2)
  1. JAKAFI [Suspect]
     Active Substance: RUXOLITINIB
     Indication: POLYCYTHAEMIA VERA
     Dosage: 10 MILLIGRAM, BID
     Route: 048
     Dates: start: 20200902
  2. JAKAFI [Suspect]
     Active Substance: RUXOLITINIB
     Dosage: 15 MILLIGRAM, BID
     Route: 048
     Dates: start: 20210107

REACTIONS (8)
  - Abnormal faeces [Unknown]
  - Abdominal distension [Unknown]
  - Lethargy [Unknown]
  - Flatulence [Unknown]
  - Fatigue [Unknown]
  - Faeces discoloured [Unknown]
  - Weight increased [Unknown]
  - Gastrointestinal disorder [Unknown]
